FAERS Safety Report 13465404 (Version 1)
Quarter: 2017Q2

REPORT INFORMATION
  Report Type: Spontaneous
  Country: US (occurrence: US)
  Receive Date: 20170420
  Receipt Date: 20170420
  Transmission Date: 20170830
  Serious: Yes (Life-Threatening, Hospitalization)
  Sender: FDA-Public Use
  Company Number: None

PATIENT
  Age: 69 Year
  Sex: Male
  Weight: 75.9 kg

DRUGS (2)
  1. PERFLUTREN [Suspect]
     Active Substance: PERFLUTREN
     Indication: CORONARY ARTERY DISEASE
     Dates: start: 20161208, end: 20161208
  2. PERFLUTREN [Suspect]
     Active Substance: PERFLUTREN
     Indication: ANGINA UNSTABLE
     Dates: start: 20161208, end: 20161208

REACTIONS (5)
  - Hypotension [None]
  - Rash [None]
  - Angina pectoris [None]
  - Type IV hypersensitivity reaction [None]
  - Contrast media reaction [None]

NARRATIVE: CASE EVENT DATE: 20161219
